FAERS Safety Report 13720272 (Version 2)
Quarter: 2017Q3

REPORT INFORMATION
  Report Type: Spontaneous
  Country: FR (occurrence: FR)
  Receive Date: 20170706
  Receipt Date: 20170713
  Transmission Date: 20171127
  Serious: Yes (Hospitalization)
  Sender: FDA-Public Use
  Company Number: FR-BAXTER-2017BAX026463

PATIENT
  Age: 68 Year
  Sex: Male

DRUGS (17)
  1. RITUXIMAB. [Suspect]
     Active Substance: RITUXIMAB
     Indication: DIFFUSE LARGE B-CELL LYMPHOMA STAGE IV
     Dosage: RCHEP ONE COURSE
     Route: 065
     Dates: start: 20170421, end: 20170421
  2. ETOPOSIDE. [Suspect]
     Active Substance: ETOPOSIDE
     Indication: DIFFUSE LARGE B-CELL LYMPHOMA STAGE IV
     Dosage: CONCENTRATE FOR INFUSION, REPOCH THERAPY
     Route: 041
     Dates: start: 20170511, end: 20170514
  3. DOXORUBICINE HYDROCHLORIDE [Suspect]
     Active Substance: DOXORUBICIN HYDROCHLORIDE
     Indication: DIFFUSE LARGE B-CELL LYMPHOMA STAGE IV
     Dosage: REPOCH THERAPY
     Route: 041
     Dates: start: 20170511, end: 20170514
  4. VINCRISTINE [Suspect]
     Active Substance: VINCRISTINE
     Indication: DIFFUSE LARGE B-CELL LYMPHOMA STAGE IV
     Dosage: REPOCH THERAPY
     Route: 041
     Dates: start: 20170511, end: 20170514
  5. METHOTREXATE BIODIM [Suspect]
     Active Substance: METHOTREXATE
     Indication: DIFFUSE LARGE B-CELL LYMPHOMA STAGE IV
     Dosage: SINGLE INTAKE
     Route: 037
     Dates: start: 20170510, end: 20170510
  6. ENDOXAN 1000 MG, POUDRE POUR SOLUTION INJECTABLE [Suspect]
     Active Substance: CYCLOPHOSPHAMIDE
     Indication: DIFFUSE LARGE B-CELL LYMPHOMA STAGE IV
     Dosage: R-CHEP ONE COURSE
     Route: 065
     Dates: start: 20170421, end: 20170421
  7. PREDNISONE. [Suspect]
     Active Substance: PREDNISONE
     Indication: DIFFUSE LARGE B-CELL LYMPHOMA STAGE IV
     Dosage: RCHEP ONE COURSE
     Route: 065
     Dates: start: 20170421, end: 20170421
  8. DOXORUBICIN [Suspect]
     Active Substance: DOXORUBICIN
     Indication: DIFFUSE LARGE B-CELL LYMPHOMA STAGE IV
     Dosage: RCHEP ONE COURSE
     Route: 065
     Dates: start: 20170421, end: 20170421
  9. ARACYTINE [Suspect]
     Active Substance: CYTARABINE
     Indication: DIFFUSE LARGE B-CELL LYMPHOMA STAGE IV
     Dosage: SINGLE INTAKE
     Route: 037
     Dates: start: 20170510, end: 20170510
  10. MABTHERA [Suspect]
     Active Substance: RITUXIMAB
     Indication: DIFFUSE LARGE B-CELL LYMPHOMA STAGE IV
     Dosage: REPOCH THERAPY
     Route: 041
     Dates: start: 20170511, end: 20170515
  11. CORTANCYL [Suspect]
     Active Substance: PREDNISONE
     Indication: DIFFUSE LARGE B-CELL LYMPHOMA STAGE IV
     Dosage: REPOCH THERAPY
     Route: 048
     Dates: start: 20170511, end: 20170515
  12. BETAHISTINE [Concomitant]
     Active Substance: BETAHISTINE
     Indication: PRODUCT USED FOR UNKNOWN INDICATION
     Route: 065
  13. LEVOTHYROX [Concomitant]
     Active Substance: LEVOTHYROXINE
     Indication: PRODUCT USED FOR UNKNOWN INDICATION
     Route: 065
  14. ENDOXAN 1000 MG, POUDRE POUR SOLUTION INJECTABLE [Suspect]
     Active Substance: CYCLOPHOSPHAMIDE
     Dosage: REPOCH THERAPY
     Route: 041
     Dates: start: 20170515, end: 20170515
  15. CELLTOP 100 MG/5 ML, SOLUTION INJECTABLE POUR PERFUSION [Suspect]
     Active Substance: ETOPOSIDE
     Indication: DIFFUSE LARGE B-CELL LYMPHOMA STAGE IV
     Dosage: RCHEP ONE COURSE
     Route: 065
     Dates: start: 20170421, end: 20170421
  16. METHYLPREDNISOLONE. [Suspect]
     Active Substance: METHYLPREDNISOLONE
     Indication: DIFFUSE LARGE B-CELL LYMPHOMA STAGE IV
     Route: 037
     Dates: start: 20170510, end: 20170510
  17. CARTEOL [Concomitant]
     Active Substance: CARTEOLOL
     Indication: PRODUCT USED FOR UNKNOWN INDICATION
     Route: 065

REACTIONS (7)
  - Septic shock [Recovered/Resolved]
  - Bicytopenia [Unknown]
  - Hypokalaemia [Unknown]
  - Campylobacter gastroenteritis [Recovered/Resolved]
  - Acute kidney injury [Recovering/Resolving]
  - Bone marrow failure [Recovered/Resolved]
  - Drug interaction [Unknown]

NARRATIVE: CASE EVENT DATE: 20170520
